FAERS Safety Report 6711080-2 (Version None)
Quarter: 2010Q2

REPORT INFORMATION
  Report Type: 
  Country: None (occurrence: None)
  Receive Date: 20100505
  Receipt Date: 20090528
  Transmission Date: 20101027
  Serious: No
  Sender: FDA-Public Use
  Company Number: US-KINGPHARMUSA00001-K200900650

PATIENT
  Sex: Male

DRUGS (3)
  1. AVINZA [Suspect]
     Indication: FOOT AMPUTATION
     Dosage: UNK, QD
     Route: 048
     Dates: start: 20090401, end: 20090401
  2. AVINZA [Suspect]
     Indication: SKIN ULCER
  3. HYDROCODONE BITARTRATE [Concomitant]
     Indication: BREAKTHROUGH PAIN
     Dosage: UNK
     Route: 048

REACTIONS (1)
  - RASH VESICULAR [None]
